FAERS Safety Report 13334269 (Version 3)
Quarter: 2017Q2

REPORT INFORMATION
  Report Type: Spontaneous
  Country: JP (occurrence: JP)
  Receive Date: 20170314
  Receipt Date: 20170526
  Transmission Date: 20170830
  Serious: Yes (Hospitalization, Other)
  Sender: FDA-Public Use
  Company Number: JP-PFIZER INC-2017106520

PATIENT
  Age: 66 Year
  Sex: Male

DRUGS (8)
  1. REBAMIPIDE [Concomitant]
     Active Substance: REBAMIPIDE
     Indication: GASTRITIS
     Dosage: 100 MG, AS NEEDED
     Route: 048
     Dates: start: 20160519, end: 20160915
  2. URSO [Concomitant]
     Active Substance: URSODIOL
     Indication: CHOLELITHIASIS
     Dosage: 100 MG, 3X/DAY
     Route: 048
     Dates: start: 20160621, end: 20160707
  3. THYRADIN-S [Concomitant]
     Active Substance: LEVOTHYROXINE
     Indication: HYPOTHYROIDISM
     Dosage: 50 UG, 1X/DAY
     Route: 048
     Dates: start: 20161006
  4. ATEDIO [Concomitant]
     Indication: HYPERTENSION
     Dosage: 1 DF, 1X/DAY
     Route: 048
     Dates: start: 20160602, end: 20170323
  5. FOLIAMIN [Concomitant]
     Active Substance: FOLIC ACID
     Indication: ANAEMIA MACROCYTIC
     Dosage: 5 MG, 1X/DAY
     Route: 048
     Dates: start: 20161222, end: 20170112
  6. SUTENT [Suspect]
     Active Substance: SUNITINIB MALATE
     Indication: RENAL CELL CARCINOMA
     Dosage: 25 MG, 1X/DAY
     Route: 048
     Dates: start: 20160302, end: 20170309
  7. MECOBALAMIN [Concomitant]
     Active Substance: METHYLCOBALAMIN
     Indication: ANAEMIA MACROCYTIC
     Dosage: 500 UG, 2X/DAY
     Route: 048
     Dates: start: 20161222
  8. FEBURIC [Concomitant]
     Active Substance: FEBUXOSTAT
     Indication: HYPERURICAEMIA
     Dosage: 10 MG, 1X/DAY
     Route: 048
     Dates: start: 20160506

REACTIONS (2)
  - Cardiac failure congestive [Recovering/Resolving]
  - Interstitial lung disease [Recovering/Resolving]

NARRATIVE: CASE EVENT DATE: 20170309
